FAERS Safety Report 6003055-6 (Version None)
Quarter: 2008Q4

REPORT INFORMATION
  Report Type: 
  Country: None (occurrence: None)
  Receive Date: 20081215
  Receipt Date: 20081203
  Transmission Date: 20090506
  Serious: Yes (Other)
  Sender: FDA-Public Use
  Company Number: AU-PFIZER INC-2008152893

PATIENT

DRUGS (2)
  1. LIPITOR [Suspect]
  2. ANTIHYPERTENSIVES [Concomitant]

REACTIONS (4)
  - HYPOTONIA [None]
  - INSOMNIA [None]
  - KNEE OPERATION [None]
  - PAIN [None]
